FAERS Safety Report 13325052 (Version 2)
Quarter: 2017Q1

REPORT INFORMATION
  Report Type: Report from Study
  Country: US (occurrence: DE)
  Receive Date: 20170310
  Receipt Date: 20170320
  Transmission Date: 20170428
  Serious: Yes (Hospitalization, Other)
  Sender: FDA-Public Use
  Company Number: US-SUNOVION-2017SUN001092

PATIENT

DRUGS (18)
  1. LYRICA [Concomitant]
     Active Substance: PREGABALIN
  2. DIGIMERCK [Concomitant]
     Active Substance: DIGITOXIN
  3. ALLOPURINOL SANDOZ [Concomitant]
     Active Substance: ALLOPURINOL
     Dosage: 300 MG, UNK
  4. EUTHYROX [Concomitant]
     Active Substance: LEVOTHYROXINE SODIUM
  5. INDACATEROL AND GLYCOPYRROLATE [Suspect]
     Active Substance: GLYCOPYRROLATE\INDACATEROL MALEATE
     Indication: CHRONIC OBSTRUCTIVE PULMONARY DISEASE
     Dosage: 1 DF, QD
  6. ALLOPURINOL. [Concomitant]
     Active Substance: ALLOPURINOL
  7. TORASEMIDE [Concomitant]
     Active Substance: TORSEMIDE
  8. MOXONIDINE [Concomitant]
     Active Substance: MOXONIDINE
  9. SPIRONOLACTONE. [Concomitant]
     Active Substance: SPIRONOLACTONE
  10. JANUVIA [Concomitant]
     Active Substance: SITAGLIPTIN PHOSPHATE
  11. ASPIRIN. [Concomitant]
     Active Substance: ASPIRIN
  12. GLYCOPYRROLATE. [Suspect]
     Active Substance: GLYCOPYRROLATE
     Indication: CHRONIC OBSTRUCTIVE PULMONARY DISEASE
     Dosage: 1 DF, UNK
     Route: 055
     Dates: start: 20130124, end: 20131118
  13. OMEPRAZOLE. [Concomitant]
     Active Substance: OMEPRAZOLE
  14. CARVEDIOL [Concomitant]
     Active Substance: CARVEDILOL
  15. JARDIANCE [Concomitant]
     Active Substance: EMPAGLIFLOZIN
  16. VALSARTAN. [Concomitant]
     Active Substance: VALSARTAN
  17. ATMADISC [Concomitant]
     Active Substance: FLUTICASONE PROPIONATE\SALMETEROL XINAFOATE
     Dosage: 250/20 UNK
  18. SALBUTAMOL CT [Concomitant]

REACTIONS (10)
  - Back pain [Recovering/Resolving]
  - Blood pressure increased [Unknown]
  - Weight increased [Recovered/Resolved]
  - Pain in extremity [Unknown]
  - Oedema peripheral [Recovering/Resolving]
  - Cardiac failure [Unknown]
  - Dyspnoea [Unknown]
  - General physical health deterioration [Recovering/Resolving]
  - Pleural effusion [Recovering/Resolving]
  - Anaemia [Recovering/Resolving]

NARRATIVE: CASE EVENT DATE: 20130430
